FAERS Safety Report 11552239 (Version 1)
Quarter: 2015Q3

REPORT INFORMATION
  Report Type: Spontaneous
  Country: US (occurrence: None)
  Receive Date: 20150923
  Receipt Date: 20150923
  Transmission Date: 20151125
  Serious: Yes (Death, Other)
  Sender: FDA-Public Use
  Company Number: 1713747-2015-999324

PATIENT
  Sex: Male

DRUGS (7)
  1. FRESENIUS SALINE [Suspect]
     Active Substance: SODIUM CHLORIDE
     Indication: ELECTROLYTE SUBSTITUTION THERAPY
     Route: 051
  2. FRESENIUS SALINE [Suspect]
     Active Substance: SODIUM CHLORIDE
     Indication: FLUID REPLACEMENT
     Route: 051
  3. K@HOME [Concomitant]
  4. OPTIFLUX 160NR DIALYZER [Concomitant]
  5. BIBAG [Concomitant]
  6. NATURALYTE ACID 2K+ 2.5CA+ [Concomitant]
  7. FRESENIUS BLOODLINE FOR THE K@HOME [Concomitant]

REACTIONS (1)
  - Cardiac arrest [None]

NARRATIVE: CASE EVENT DATE: 20150914
